FAERS Safety Report 17944498 (Version 2)
Quarter: 2020Q3

REPORT INFORMATION
  Report Type: Spontaneous
  Country: JP (occurrence: JP)
  Receive Date: 20200625
  Receipt Date: 20200714
  Transmission Date: 20201103
  Serious: Yes (Hospitalization)
  Sender: FDA-Public Use
  Company Number: JP-BAYER-2020-122486

PATIENT
  Sex: Male

DRUGS (2)
  1. UFT [Suspect]
     Active Substance: TEGAFUR\URACIL
     Indication: NEOPLASM MALIGNANT
     Dosage: UNK
     Dates: start: 202005, end: 20200615
  2. NEXAVAR [Suspect]
     Active Substance: SORAFENIB
     Indication: HEPATOCELLULAR CARCINOMA
     Dosage: 200 MG, BID
     Route: 048
     Dates: start: 202004, end: 202005

REACTIONS (2)
  - Off label use [None]
  - Oedema [Unknown]

NARRATIVE: CASE EVENT DATE: 20200612
